FAERS Safety Report 7621486-5 (Version None)
Quarter: 2011Q3

REPORT INFORMATION
  Report Type: 
  Country: None (occurrence: None)
  Receive Date: 20110719
  Receipt Date: 20110714
  Transmission Date: 20111222
  Serious: Yes (Hospitalization)
  Sender: FDA-Public Use
  Company Number: US-B.I. PHARMACEUTICALS,INC./RIDGEFIELD-2011-BP-14573BP

PATIENT
  Age: 74 Year
  Sex: Male
  Weight: 104.78 kg

DRUGS (6)
  1. AMIODARONE HCL [Concomitant]
     Dates: start: 20110422
  2. ASPIRIN [Concomitant]
     Dates: start: 20110408
  3. DILTIAZEM [Concomitant]
     Dates: start: 20110408
  4. SYNTHROID [Concomitant]
     Dosage: 200 MCG
  5. PRADAXA [Suspect]
     Indication: ATRIAL FIBRILLATION
     Dosage: 300 MG
     Route: 048
     Dates: start: 20110412, end: 20110426
  6. METOPROLOL TARTRATE [Concomitant]
     Dosage: 50 MG
     Dates: start: 20110408

REACTIONS (3)
  - SYNCOPE [None]
  - CARDIAC TAMPONADE [None]
  - PERICARDIAL EFFUSION [None]
